FAERS Safety Report 6779324-9 (Version None)
Quarter: 2010Q2

REPORT INFORMATION
  Report Type: 
  Country: None (occurrence: None)
  Receive Date: 20100618
  Receipt Date: 20100607
  Transmission Date: 20101027
  Serious: Yes (Hospitalization, Other)
  Sender: FDA-Public Use
  Company Number: PHHY2009TW60823

PATIENT
  Sex: Male

DRUGS (3)
  1. GLEEVEC [Suspect]
     Dosage: 800 MG
     Dates: start: 20060801
  2. SUTENT [Suspect]
     Dosage: 3 DF, UNK
     Route: 048
     Dates: start: 20100201
  3. SUTENT [Suspect]
     Dosage: 2 DF, 100 MG
     Route: 048

REACTIONS (15)
  - ABDOMINAL DISTENSION [None]
  - ABDOMINAL PAIN [None]
  - ARTHRITIS [None]
  - DIAPHRAGMATIC DISORDER [None]
  - DRY SKIN [None]
  - DYSPNOEA [None]
  - HERNIA [None]
  - MUSCULOSKELETAL STIFFNESS [None]
  - NAUSEA [None]
  - NEOPLASM [None]
  - PAIN [None]
  - PALPITATIONS [None]
  - PNEUMONIA [None]
  - PYREXIA [None]
  - VOMITING [None]
